FAERS Safety Report 4953832-5 (Version None)
Quarter: 2006Q1

REPORT INFORMATION
  Report Type: 
  Country: None (occurrence: None)
  Receive Date: 20060324
  Receipt Date: 20060324
  Transmission Date: 20060701
  Serious: Yes (Hospitalization)
  Sender: FDA-Public Use
  Company Number: None

PATIENT
  Age: 81 Year
  Sex: Male

DRUGS (4)
  1. LISINOPRIL [Suspect]
     Indication: HYPERTENSION
     Dosage: 20MG  QD
     Dates: start: 20050615, end: 20050930
  2. ARTICIAL TEARS [Concomitant]
  3. HYDROCHLOROTHIAZIDE [Concomitant]
  4. SIMVASTATIN [Concomitant]

REACTIONS (3)
  - BLOOD PRESSURE ABNORMAL [None]
  - SWELLING FACE [None]
  - URTICARIA [None]
